FAERS Safety Report 5255905-9 (Version None)
Quarter: 2007Q1

REPORT INFORMATION
  Report Type: 
  Country: None (occurrence: None)
  Receive Date: 20070305
  Receipt Date: 20070223
  Transmission Date: 20070707
  Serious: Yes (Other)
  Sender: FDA-Public Use
  Company Number: US-ABBOTT-07P-163-0360409-00

PATIENT
  Sex: Female
  Weight: 57.204 kg

DRUGS (5)
  1. OMNICEF [Suspect]
     Indication: SINUSITIS
     Route: 048
     Dates: start: 20070219, end: 20070219
  2. ESOMEPRAZOLE MAGNESIUM [Concomitant]
     Indication: DRUG USE FOR UNKNOWN INDICATION
  3. ORTHO EVRA [Concomitant]
     Indication: CONTRACEPTION
  4. FACTIVE [Concomitant]
     Indication: SINUSITIS
  5. RESPAIRE-SR-120 [Concomitant]
     Indication: SINUSITIS

REACTIONS (6)
  - CHEST PAIN [None]
  - CHOKING SENSATION [None]
  - NAUSEA [None]
  - OEDEMA PERIPHERAL [None]
  - PANIC REACTION [None]
  - RASH [None]
